FAERS Safety Report 20131889 (Version 1)
Quarter: 2021Q4

REPORT INFORMATION
  Report Type: Spontaneous
  Country: US (occurrence: US)
  Receive Date: 20211130
  Receipt Date: 20211130
  Transmission Date: 20220303
  Serious: Yes (Hospitalization)
  Sender: FDA-Public Use
  Company Number: US-MYLANLABS-2021M1088751

PATIENT
  Age: 32 Year
  Sex: Male

DRUGS (2)
  1. CLOZAPINE [Suspect]
     Active Substance: CLOZAPINE
     Indication: Schizophrenia
     Dosage: 12.5 MILLIGRAM, BID, INITIAL DOSE; UP-TITRATED AFTER EVERY 3 DAYS TO ATTAIN A DOSE OF 100MG BID
     Route: 065
  2. CLOZAPINE [Suspect]
     Active Substance: CLOZAPINE
     Dosage: 100 MILLIGRAM, BID
     Route: 065

REACTIONS (3)
  - Pericarditis [Recovered/Resolved]
  - Pericardial effusion [Recovered/Resolved]
  - Orthostatic hypotension [Recovered/Resolved]
